FAERS Safety Report 12080036 (Version 1)
Quarter: 2016Q1

REPORT INFORMATION
  Report Type: Spontaneous
  Country: ES (occurrence: ES)
  Receive Date: 20160216
  Receipt Date: 20160216
  Transmission Date: 20160526
  Serious: Yes (Death, Other)
  Sender: FDA-Public Use
  Company Number: PHHY2016ES019590

PATIENT
  Age: 58 Year
  Sex: Female

DRUGS (6)
  1. ZOLEDRONATE [Suspect]
     Active Substance: ZOLEDRONIC ACID
     Indication: METASTASES TO BONE
     Dosage: 4 MG EVERY 3-4 WEEKS FOR 24 CYCLES
     Route: 042
  2. TAMOXIFEN [Suspect]
     Active Substance: TAMOXIFEN
     Indication: INVASIVE DUCTAL BREAST CARCINOMA
     Route: 065
  3. MITOXANTRONE [Suspect]
     Active Substance: MITOXANTRONE HYDROCHLORIDE
     Indication: METASTASES TO LIVER
  4. ZOLEDRONATE [Suspect]
     Active Substance: ZOLEDRONIC ACID
     Indication: METASTASES TO LIVER
  5. MITOXANTRONE [Suspect]
     Active Substance: MITOXANTRONE HYDROCHLORIDE
     Indication: METASTASES TO BONE
     Dosage: 10 MG/M2, QD
     Route: 065
  6. LETROZOLE. [Suspect]
     Active Substance: LETROZOLE
     Indication: METASTASES TO PLEURA
     Route: 065

REACTIONS (8)
  - Osteonecrosis of jaw [Not Recovered/Not Resolved]
  - Gingival ulceration [Unknown]
  - Gingival pain [Unknown]
  - Gingivitis [Recovering/Resolving]
  - Invasive ductal breast carcinoma [Fatal]
  - Exposed bone in jaw [Not Recovered/Not Resolved]
  - Malignant neoplasm progression [Unknown]
  - Stomatitis [Unknown]
